FAERS Safety Report 10232680 (Version 1)
Quarter: 2014Q2

REPORT INFORMATION
  Report Type: Spontaneous
  Country: US (occurrence: None)
  Receive Date: 20140506
  Receipt Date: 20140506
  Transmission Date: 20141212
  Serious: Yes (Hospitalization)
  Sender: FDA-Public Use
  Company Number: 1228588

PATIENT
  Age: 38 Year
  Sex: Male

DRUGS (5)
  1. BEVACIZUMAB (BEVACIZUMAB) [Suspect]
     Indication: COLON CANCER METASTATIC
  2. OXALIPLATIN (OXALIPLATIN) [Concomitant]
  3. LEUCOVORIN (CALCIUM FOLINATE) [Concomitant]
  4. 5-FU (FLUOROURACIL) [Concomitant]
  5. IRINOTECAN (IRINOTECAN HYDROCHLORIDE) [Concomitant]

REACTIONS (1)
  - Abdominal abscess [None]
